FAERS Safety Report 21110886 (Version 1)
Quarter: 2022Q3

REPORT INFORMATION
  Report Type: Spontaneous
  Country: US (occurrence: None)
  Receive Date: 20220720
  Receipt Date: 20220720
  Transmission Date: 20221026
  Serious: No
  Sender: FDA-Public Use
  Company Number: None

PATIENT
  Age: 84 Year
  Sex: Female

DRUGS (3)
  1. SIMVASTATIN [Suspect]
     Active Substance: SIMVASTATIN
     Indication: Blood cholesterol increased
     Dosage: FREQUENCY : DAILY;?
     Route: 048
     Dates: start: 20220622, end: 20220701
  2. DESIPRAMINE [Concomitant]
     Dates: start: 20220402
  3. LISINOPRIL [Concomitant]
     Dates: start: 20220402

REACTIONS (3)
  - Foreign body in throat [None]
  - Oesophageal pain [None]
  - Product physical issue [None]

NARRATIVE: CASE EVENT DATE: 20220701
